FAERS Safety Report 7700827-4 (Version None)
Quarter: 2011Q3

REPORT INFORMATION
  Report Type: 
  Country: None (occurrence: None)
  Receive Date: 20110822
  Receipt Date: 20110809
  Transmission Date: 20111222
  Serious: Yes (Other)
  Sender: FDA-Public Use
  Company Number: JP-PFIZER INC-2011190959

PATIENT
  Age: 42 Year
  Sex: Male

DRUGS (5)
  1. TRANEXAMIC ACID [Concomitant]
     Dosage: UNK
     Route: 048
     Dates: start: 20110802, end: 20110805
  2. LIPITOR [Suspect]
     Dosage: 5 MG, 1X/DAY
     Route: 048
     Dates: end: 20110805
  3. CYPROHEPTADINE HYDROCHLORIDE [Concomitant]
     Dosage: UNK
     Route: 048
     Dates: start: 20110802, end: 20110805
  4. RINGEREAZE [Suspect]
     Dosage: 180 MG, 1X/DAY
     Route: 048
     Dates: start: 20110802, end: 20110805
  5. ALLOPURINOL [Concomitant]
     Dosage: UNK
     Route: 048
     Dates: end: 20110805

REACTIONS (2)
  - RHABDOMYOLYSIS [None]
  - DRUG INTERACTION [None]
